FAERS Safety Report 12763790 (Version 1)
Quarter: 2016Q3

REPORT INFORMATION
  Report Type: Spontaneous
  Country: FI (occurrence: FI)
  Receive Date: 20160920
  Receipt Date: 20160920
  Transmission Date: 20161109
  Serious: Yes (Hospitalization, Other)
  Sender: FDA-Public Use
  Company Number: FI-MYLANLABS-2016M1039468

PATIENT

DRUGS (4)
  1. TRAMADOL. [Suspect]
     Active Substance: TRAMADOL
     Indication: ARTHRALGIA
     Dosage: 3 DF, UNK (DURING ONE HOUR)
     Route: 065
  2. RIVAROXABAN [Suspect]
     Active Substance: RIVAROXABAN
     Indication: THROMBOSIS PROPHYLAXIS
     Dosage: 10 MG, QD
     Route: 065
  3. NAPROXEN. [Suspect]
     Active Substance: NAPROXEN
     Indication: ANALGESIC THERAPY
     Dosage: UNK
     Route: 065
  4. PREGABALIN. [Suspect]
     Active Substance: PREGABALIN
     Indication: ANALGESIC THERAPY
     Dosage: UNK
     Route: 065

REACTIONS (5)
  - Nausea [Recovered/Resolved]
  - Vomiting [Unknown]
  - Disorientation [Recovered/Resolved]
  - Headache [Unknown]
  - Vertigo [Unknown]
